FAERS Safety Report 5730529-5 (Version None)
Quarter: 2008Q2

REPORT INFORMATION
  Report Type: 
  Country: None (occurrence: None)
  Receive Date: 20080507
  Receipt Date: 20080507
  Transmission Date: 20081010
  Serious: Yes (Other)
  Sender: FDA-Public Use
  Company Number: A0726741A

PATIENT
  Age: 29 Year
  Sex: Female
  Weight: 69.5 kg

DRUGS (2)
  1. ALLI [Suspect]
     Indication: WEIGHT LOSS DIET
     Route: 048
     Dates: start: 20080426, end: 20080505
  2. NO CONCURRENT MEDICATION [Concomitant]

REACTIONS (8)
  - ANAL HAEMORRHAGE [None]
  - FLATULENCE [None]
  - HAEMATOCHEZIA [None]
  - MALAISE [None]
  - MUSCLE SPASMS [None]
  - NAUSEA [None]
  - PAIN [None]
  - RECTAL HAEMORRHAGE [None]
